FAERS Safety Report 17918001 (Version 1)
Quarter: 2020Q2

REPORT INFORMATION
  Report Type: Spontaneous
  Country: FR (occurrence: FR)
  Receive Date: 20200619
  Receipt Date: 20200619
  Transmission Date: 20200714
  Serious: Yes (Other)
  Sender: FDA-Public Use
  Company Number: FR-LUPIN PHARMACEUTICALS INC.-2020-02924

PATIENT
  Age: 3 Year
  Sex: Male

DRUGS (1)
  1. DESLORATADINE TABLETS [Suspect]
     Active Substance: DESLORATADINE
     Indication: PRODUCT USED FOR UNKNOWN INDICATION
     Dosage: 75 MILLIGRAM (15 TABLET OF 5 MG)
     Route: 065

REACTIONS (4)
  - Gastrointestinal pain [Unknown]
  - Sinus bradycardia [Unknown]
  - Somnolence [Unknown]
  - Accidental overdose [Unknown]
